FAERS Safety Report 5472520-2 (Version None)
Quarter: 2007Q4

REPORT INFORMATION
  Report Type: 
  Country: None (occurrence: None)
  Receive Date: 20071001
  Receipt Date: 20070924
  Transmission Date: 20080405
  Serious: Yes (Hospitalization, Other)
  Sender: FDA-Public Use
  Company Number: BR-ABBOTT-07P-020-0418390-00

PATIENT
  Sex: Male
  Weight: 66 kg

DRUGS (1)
  1. DEPAKENE [Suspect]
     Indication: EPILEPSY
     Route: 048
     Dates: start: 19840101

REACTIONS (3)
  - ABDOMINAL NEOPLASM [None]
  - NECK MASS [None]
  - PULMONARY OEDEMA [None]
